FAERS Safety Report 5157500-9 (Version None)
Quarter: 2006Q4

REPORT INFORMATION
  Report Type: 
  Country: None (occurrence: None)
  Receive Date: 20061127
  Receipt Date: 20060512
  Transmission Date: 20070319
  Serious: Yes (Disabling, Other)
  Sender: FDA-Public Use
  Company Number: GB-GLAXOSMITHKLINE-B0423651A

PATIENT
  Age: 51 Year
  Sex: Male

DRUGS (1)
  1. SERETIDE [Suspect]
     Route: 055
     Dates: end: 20060509

REACTIONS (2)
  - BLOOD PRESSURE INCREASED [None]
  - HEADACHE [None]
